FAERS Safety Report 7331381-7 (Version None)
Quarter: 2011Q1

REPORT INFORMATION
  Report Type: 
  Country: None (occurrence: None)
  Receive Date: 20110304
  Receipt Date: 20110302
  Transmission Date: 20110831
  Serious: Yes (Hospitalization)
  Sender: FDA-Public Use
  Company Number: GB-PFIZER INC-2010137202

PATIENT
  Age: 24 Year
  Sex: Male

DRUGS (17)
  1. MIRTAZAPINE [Suspect]
     Indication: DISSOCIATIVE IDENTITY DISORDER
     Dosage: 4 X 45 MG
     Route: 048
     Dates: start: 20101008
  2. CLOZARIL [Suspect]
     Indication: SCHIZOPHRENIA
     Dosage: 250 MG, 2X/DAY
     Route: 048
     Dates: start: 20100429
  3. TRUVADA [Concomitant]
     Indication: PRODUCT USED FOR UNKNOWN INDICATION
     Dosage: UNK
     Route: 065
     Dates: start: 20100101
  4. CLOZARIL [Suspect]
     Dosage: 19 X 100 MG
     Route: 048
     Dates: start: 20101008
  5. CLOZARIL [Suspect]
     Dosage: UNK
     Route: 048
     Dates: start: 20101011
  6. NICOTINE POLACRILEX [Concomitant]
     Dosage: UNK
  7. PANADOL [Suspect]
     Dosage: 6 X 500 MG
     Route: 048
  8. PRIADEL [Suspect]
     Indication: PERSONALITY DISORDER
     Dosage: 12 X 400 MG
     Route: 048
  9. NIQUITIN [Concomitant]
     Indication: SMOKING CESSATION THERAPY
     Dosage: UNK
     Route: 062
  10. IBUPROFEN [Suspect]
     Indication: PRODUCT USED FOR UNKNOWN INDICATION
     Dosage: 12 X 200 MG
     Route: 048
  11. PARACETAMOL [Suspect]
     Indication: PRODUCT USED FOR UNKNOWN INDICATION
     Dosage: 8 X 500 MG
     Route: 048
  12. ALCOHOL [Suspect]
     Indication: PRODUCT USED FOR UNKNOWN INDICATION
     Dosage: UNK
     Route: 065
  13. NICOTINE [Concomitant]
     Indication: SMOKING CESSATION THERAPY
     Dosage: UNK
     Route: 062
  14. LITHIUM [Suspect]
     Indication: PRODUCT USED FOR UNKNOWN INDICATION
     Dosage: UNK
     Route: 065
     Dates: start: 20101008
  15. HYOSCINE HYDROBROMIDE [Concomitant]
     Indication: PRODUCT USED FOR UNKNOWN INDICATION
     Dosage: UNK
     Route: 048
  16. KALETRA [Concomitant]
     Indication: PRODUCT USED FOR UNKNOWN INDICATION
     Dosage: UNK
     Route: 065
     Dates: start: 20100101
  17. LACTULOSE [Concomitant]
     Dosage: UNK
     Route: 048

REACTIONS (2)
  - INTENTIONAL OVERDOSE [None]
  - SUICIDE ATTEMPT [None]
